FAERS Safety Report 7278221-2 (Version None)
Quarter: 2011Q1

REPORT INFORMATION
  Report Type: 
  Country: None (occurrence: None)
  Receive Date: 20110111
  Receipt Date: 20110111
  Transmission Date: 20110831
  Serious: No
  Sender: FDA-Public Use
  Company Number: None

PATIENT
  Age: 40 Year
  Sex: Female
  Weight: 49.8957 kg

DRUGS (2)
  1. AVONEX [Concomitant]
  2. ANTISEPTIC ALCOHOL SWAB 70% TRIAD GROUP, INC [Suspect]
     Indication: THERAPEUTIC SKIN CARE TOPICAL
     Dosage: 2 SWABS WEEKLY IM
     Route: 030
     Dates: start: 20100101, end: 20110101

REACTIONS (1)
  - MALAISE [None]
